FAERS Safety Report 9800282 (Version 2)
Quarter: 2014Q1

REPORT INFORMATION
  Report Type: Spontaneous
  Country: US (occurrence: US)
  Receive Date: 20140106
  Receipt Date: 20140106
  Transmission Date: 20141002
  Serious: Yes (Hospitalization)
  Sender: FDA-Public Use
  Company Number: US-ABBVIE-13P-163-1112607-00

PATIENT
  Age: 38 Year
  Sex: Female
  Weight: 129.39 kg

DRUGS (6)
  1. HUMIRA [Suspect]
     Indication: RHEUMATOID ARTHRITIS
     Dates: start: 201112, end: 20130506
  2. HUMIRA [Suspect]
     Dates: start: 20130506
  3. TYLENOL [Concomitant]
     Indication: PRODUCT USED FOR UNKNOWN INDICATION
  4. PRENATAL VITAMINS [Concomitant]
     Indication: PRODUCT USED FOR UNKNOWN INDICATION
  5. STOOL SOFTENER [Concomitant]
     Indication: PRODUCT USED FOR UNKNOWN INDICATION
  6. TYLENOL PM EXTRA STRENGTH [Concomitant]
     Indication: PRODUCT USED FOR UNKNOWN INDICATION
     Dosage: AT BEDTIME
     Dates: start: 20120620

REACTIONS (10)
  - Pre-eclampsia [Recovered/Resolved]
  - HELLP syndrome [Recovered/Resolved]
  - Procedural haemorrhage [Recovered/Resolved]
  - Insomnia [Recovered/Resolved]
  - Blood glucose abnormal [Unknown]
  - Tenosynovitis stenosans [Unknown]
  - Arthralgia [Unknown]
  - Hypothyroidism [Unknown]
  - Hypertension [Unknown]
  - Raynaud^s phenomenon [Unknown]
